FAERS Safety Report 17386490 (Version 3)
Quarter: 2020Q3

REPORT INFORMATION
  Report Type: Spontaneous
  Country: US (occurrence: US)
  Receive Date: 20200206
  Receipt Date: 20200826
  Transmission Date: 20201102
  Serious: Yes (Hospitalization, Other)
  Sender: FDA-Public Use
  Company Number: US-PFIZER INC-2020054485

PATIENT
  Age: 83 Year
  Sex: Female

DRUGS (2)
  1. IBRANCE [Suspect]
     Active Substance: PALBOCICLIB
     Dosage: 100 MG, CYCLIC (EVERY DAY (QD) X 21 DAYS OFF 7 DAYS)
     Route: 048
  2. IBRANCE [Suspect]
     Active Substance: PALBOCICLIB
     Dosage: 75 MG, CYCLIC (1 PO X DAILY X 2WEEKS ON THEN 1 WEEK OFF)
     Route: 048

REACTIONS (5)
  - Illness [Unknown]
  - Pulmonary embolism [Recovering/Resolving]
  - Muscular weakness [Unknown]
  - Diarrhoea [Unknown]
  - Dyspnoea [Unknown]
